FAERS Safety Report 4811382-0 (Version None)
Quarter: 2005Q4

REPORT INFORMATION
  Report Type: 
  Country: None (occurrence: None)
  Receive Date: 20051026
  Receipt Date: 20051026
  Transmission Date: 20060501
  Serious: Yes (Other)
  Sender: FDA-Public Use
  Company Number: None

PATIENT
  Age: 20 Year
  Sex: Female
  Weight: 49.8957 kg

DRUGS (1)
  1. PAXIL [Suspect]
     Indication: SOCIAL PHOBIA
     Dosage: DAILY    PO
     Route: 048
     Dates: start: 19990101, end: 19990801

REACTIONS (7)
  - CARDIAC FLUTTER [None]
  - DIZZINESS [None]
  - DYSPNOEA [None]
  - INFLUENZA [None]
  - MALAISE [None]
  - NAUSEA [None]
  - PAIN [None]
